FAERS Safety Report 7210250-7 (Version None)
Quarter: 2010Q4

REPORT INFORMATION
  Report Type: 
  Country: None (occurrence: None)
  Receive Date: 20101223
  Receipt Date: 20101213
  Transmission Date: 20110411
  Serious: Yes (Hospitalization)
  Sender: FDA-Public Use
  Company Number: 023736

PATIENT
  Sex: Female

DRUGS (1)
  1. CIMZIA [Suspect]
     Indication: CROHN'S DISEASE
     Dosage: SUBCUTANEOUS
     Route: 058
     Dates: start: 20100315

REACTIONS (9)
  - CONDITION AGGRAVATED [None]
  - CONSTIPATION [None]
  - CROHN'S DISEASE [None]
  - FOOD POISONING [None]
  - ILL-DEFINED DISORDER [None]
  - MUSCULOSKELETAL PAIN [None]
  - NECK PAIN [None]
  - ULCER [None]
  - WHITE BLOOD CELL COUNT INCREASED [None]
